FAERS Safety Report 13164365 (Version 2)
Quarter: 2017Q1

REPORT INFORMATION
  Report Type: Spontaneous
  Country: KR (occurrence: KR)
  Receive Date: 20170130
  Receipt Date: 20170317
  Transmission Date: 20170428
  Serious: Yes (Hospitalization, Other)
  Sender: FDA-Public Use
  Company Number: KR-009507513-1701KOR012292

PATIENT
  Age: 61 Year
  Sex: Female
  Weight: 55.6 kg

DRUGS (16)
  1. EMEND (FOSAPREPITANT DIMEGLUMINE) [Suspect]
     Active Substance: FOSAPREPITANT DIMEGLUMINE
     Indication: PROPHYLAXIS OF NAUSEA AND VOMITING
     Dosage: 150 MG, ONCE
     Route: 042
     Dates: start: 20161013, end: 20161013
  2. DEXAMETHASONE DAEWON [Concomitant]
     Indication: PROPHYLAXIS OF NAUSEA AND VOMITING
     Dosage: 12 MG, ONCE
     Route: 042
     Dates: start: 20161202, end: 20161202
  3. MACPERAN [Concomitant]
     Active Substance: METOCLOPRAMIDE HYDROCHLORIDE
     Indication: DYSPEPSIA
     Dosage: 1 TABLET, TID
     Route: 048
     Dates: start: 20161014
  4. ILDONG ADRIAMYCIN PFS [Concomitant]
     Indication: BREAST CANCER FEMALE
     Dosage: CYCLE 4, 75.4 MG, ONCE
     Route: 042
     Dates: start: 20161202, end: 20161202
  5. LEVOMELS [Concomitant]
     Indication: PROPHYLAXIS
     Dosage: STRENGTH 500 MG/5ML; 1 G, ONCE
     Route: 042
     Dates: start: 20161202, end: 20161202
  6. UROMITEXAN [Concomitant]
     Active Substance: MESNA
     Indication: PROPHYLAXIS
     Dosage: STRENGTH 400MG/4ML, 400 MG, ONCE
     Route: 042
     Dates: start: 20161202, end: 20161202
  7. APETROL (MEGESTROL ACETATE) [Concomitant]
     Indication: PROPHYLAXIS
     Dosage: 650 MG, ONCE
     Route: 048
     Dates: start: 20161014
  8. CURAN [Concomitant]
     Active Substance: RANITIDINE HYDROCHLORIDE
     Indication: DYSPEPSIA
     Dosage: 1 TABLET, BID
     Route: 048
     Dates: start: 20161014
  9. EMEND (FOSAPREPITANT DIMEGLUMINE) [Suspect]
     Active Substance: FOSAPREPITANT DIMEGLUMINE
     Dosage: 150 MG, ONCE
     Route: 042
     Dates: start: 20161111, end: 20161111
  10. EMEND (FOSAPREPITANT DIMEGLUMINE) [Suspect]
     Active Substance: FOSAPREPITANT DIMEGLUMINE
     Dosage: 150 MG, ONCE
     Route: 042
     Dates: start: 20161202, end: 20161202
  11. ENDOXAN [Concomitant]
     Active Substance: CYCLOPHOSPHAMIDE
     Indication: BREAST CANCER FEMALE
     Dosage: CYCLE 4, 754 MG, ONCE
     Route: 042
     Dates: start: 20161202, end: 20161202
  12. NORZYME [Concomitant]
     Indication: DYSPEPSIA
     Dosage: 1 CAPSULE, TID
     Route: 048
     Dates: start: 20161014
  13. ANTIS [Concomitant]
     Indication: PROPHYLAXIS
     Dosage: ROUTE: GARGLE; 10 ML, ONCE
     Route: 049
     Dates: start: 20161122, end: 20161122
  14. ALOXI [Concomitant]
     Active Substance: PALONOSETRON HYDROCHLORIDE
     Indication: PROPHYLAXIS OF NAUSEA AND VOMITING
     Dosage: 0.25 MG, ONCE
     Route: 042
     Dates: start: 20161202, end: 20161202
  15. ALLPAIN [Concomitant]
     Indication: CANCER PAIN
     Dosage: 1 CAPSULE, TID
     Route: 048
     Dates: start: 20161014
  16. SANCUSO [Concomitant]
     Active Substance: GRANISETRON
     Indication: PROPHYLAXIS OF NAUSEA AND VOMITING
     Dosage: STRENGHT 80.2X66.6 MM2; ROUTE: PATCH; ; 1 PATCH, ONCE
     Route: 062
     Dates: start: 20161202, end: 20161202

REACTIONS (3)
  - Vision blurred [Recovered/Resolved]
  - Tremor [Recovered/Resolved]
  - Cancer pain [Unknown]

NARRATIVE: CASE EVENT DATE: 2016
